FAERS Safety Report 16721658 (Version 1)
Quarter: 2019Q3

REPORT INFORMATION
  Report Type: Spontaneous
  Country: DE (occurrence: DE)
  Receive Date: 20190820
  Receipt Date: 20190820
  Transmission Date: 20191005
  Serious: Yes (Hospitalization)
  Sender: FDA-Public Use
  Company Number: DE-TEVA-2019-DE-1094046

PATIENT
  Age: 77 Year
  Sex: Male

DRUGS (13)
  1. ACLIDINIUMBROMID [Concomitant]
     Dosage: 400 MICROG, 1-0-0-0
  2. METAMIZOL [Concomitant]
     Active Substance: METAMIZOLE SODIUM
     Dosage: 500 MG, NEED; MAX 2 TBL / D
  3. INSULIN GLARGIN [Concomitant]
     Active Substance: INSULIN GLARGINE
     Dosage: 34 IE, 0-0-1-0
  4. PHENPROCOUMON [Suspect]
     Active Substance: PHENPROCOUMON
     Dosage: 3 MG, ACCORDING TO INR
  5. TORASEMID [Concomitant]
     Active Substance: TORSEMIDE
     Dosage: 10 MG, 1-0.5-0-0
  6. METOPROLOL. [Concomitant]
     Active Substance: METOPROLOL
     Dosage: 47.5 MG, 1-0-1-0
  7. INSULIN LISPRO [Concomitant]
     Active Substance: INSULIN LISPRO
     Dosage: NK IE, ACCORDING TO SCHEME
  8. SALBUTAMOL [Concomitant]
     Active Substance: ALBUTEROL
     Dosage: 0.12 MG, NEEDS
  9. PREDNISOLON [Suspect]
     Active Substance: PREDNISOLONE
     Dosage: 10 MG, 0.5-0-0-0
  10. AMBROXOL [Concomitant]
     Active Substance: AMBROXOL
     Dosage: 5 ML, 1-1-1-0, JUICE
  11. CITALOPRAM [Suspect]
     Active Substance: CITALOPRAM HYDROBROMIDE
     Dosage: 20 MG, 1-0-0-0
  12. SIMVASTATIN. [Concomitant]
     Active Substance: SIMVASTATIN
     Dosage: 40 MG, 0-0-1-0
  13. RAMIPRIL. [Concomitant]
     Active Substance: RAMIPRIL
     Dosage: 2.5 MG, 1-0-2-0

REACTIONS (1)
  - Haemoptysis [Unknown]

NARRATIVE: CASE EVENT DATE: 20171109
